FAERS Safety Report 7513665-2 (Version None)
Quarter: 2011Q2

REPORT INFORMATION
  Report Type: 
  Country: None (occurrence: None)
  Receive Date: 20110531
  Receipt Date: 20110526
  Transmission Date: 20111010
  Serious: Yes (Other)
  Sender: FDA-Public Use
  Company Number: DE-ABBOTT-10P-062-0688746-00

PATIENT
  Age: 54 Year
  Sex: Male
  Weight: 113 kg

DRUGS (7)
  1. L-THYROX [Concomitant]
     Indication: AUTOIMMUNE THYROIDITIS
  2. HUMIRA [Suspect]
     Indication: ANKYLOSING SPONDYLITIS
     Route: 058
     Dates: start: 20100517, end: 20100801
  3. PAROXETINE HCL [Concomitant]
     Indication: DEPRESSION
  4. INDOMETHACIN SODIUM [Concomitant]
     Indication: PRODUCT USED FOR UNKNOWN INDICATION
  5. HUMIRA [Suspect]
     Route: 058
     Dates: start: 20100801, end: 20101114
  6. ERGOCALCIFEROL [Concomitant]
     Indication: PRODUCT USED FOR UNKNOWN INDICATION
  7. VITAMIN B1 TAB [Concomitant]
     Indication: PRODUCT USED FOR UNKNOWN INDICATION

REACTIONS (4)
  - ANKYLOSING SPONDYLITIS [None]
  - MUSCULAR WEAKNESS [None]
  - PAIN [None]
  - ILL-DEFINED DISORDER [None]
